FAERS Safety Report 5875470-2 (Version None)
Quarter: 2008Q3

REPORT INFORMATION
  Report Type: 
  Country: None (occurrence: None)
  Receive Date: 20080904
  Receipt Date: 20080819
  Transmission Date: 20090109
  Serious: Yes (Other)
  Sender: FDA-Public Use
  Company Number: 2008002145

PATIENT
  Sex: Male

DRUGS (1)
  1. MACUGEN [Suspect]
     Indication: MACULAR DEGENERATION
     Dosage: (0.3 MG), INTRA-VITREAL

REACTIONS (2)
  - EYE DISORDER [None]
  - VISUAL ACUITY REDUCED [None]
